FAERS Safety Report 17031077 (Version 1)
Quarter: 2019Q4

REPORT INFORMATION
  Report Type: Spontaneous
  Country: US (occurrence: US)
  Receive Date: 20191011
  Receipt Date: 20191011
  Transmission Date: 20200122
  Serious: Yes (Hospitalization, Disabling, Other)
  Sender: FDA-Public Use
  Company Number: None

PATIENT
  Age: 84 Year
  Sex: Female
  Weight: 58.97 kg

DRUGS (10)
  1. SERTRALINE [Concomitant]
     Active Substance: SERTRALINE HYDROCHLORIDE
  2. DILTIAZEM. [Concomitant]
     Active Substance: DILTIAZEM
  3. TYLENOL [Concomitant]
     Active Substance: ACETAMINOPHEN
  4. ATORVASTATIN [Concomitant]
     Active Substance: ATORVASTATIN
  5. ELIQUIS [Suspect]
     Active Substance: APIXABAN
     Indication: HIP SURGERY
     Dosage: ?          QUANTITY:2.5 MG MILLIGRAM(S);?
     Route: 048
     Dates: start: 201312, end: 201904
  6. EXACTECH HIP IMPLANT [DEVICE] [Suspect]
     Active Substance: DEVICE
  7. IRON [Concomitant]
     Active Substance: IRON
  8. VIT B [Concomitant]
     Active Substance: VITAMIN B
  9. MULTIVIT [Concomitant]
     Active Substance: VITAMINS
  10. VITAMIN B12 [Concomitant]
     Active Substance: CYANOCOBALAMIN

REACTIONS (5)
  - Device breakage [None]
  - Haemorrhage [None]
  - Asthenia [None]
  - Arthralgia [None]
  - Pain [None]

NARRATIVE: CASE EVENT DATE: 20190430
